FAERS Safety Report 7819152 (Version 2)
Quarter: 2012Q4

REPORT INFORMATION
  Report Type: 
  Country: US (occurrence: US)
  Receive Date: 20110218
  Receipt Date: 20120831
  Transmission Date: 20130627
  Serious: Yes (Other)
  Sender: FDA-Public Use
  Company Number: US-US-EMD SERONO, INC.-7042019

PATIENT
  Sex: Female
  Weight: 90 kg

DRUGS (13)
  1. REBIF [Suspect]
     Indication: MULTIPLE SCLEROSIS
     Route: 058
     Dates: start: 20080627
  2. AMPHETAMINE AND DEXTROAMPHETAMINE [Concomitant]
     Indication: PRODUCT USED FOR UNKNOWN INDICATION
     Dosage: two tablets in the 5 AM and 1 tablet at noon
     Dates: start: 20120817
  3. ASCORBIC ACID WITH VITAMIN C [Concomitant]
     Indication: PRODUCT USED FOR UNKNOWN INDICATION
     Route: 048
  4. CYANOCOBALAMIN [Concomitant]
     Indication: PRODUCT USED FOR UNKNOWN INDICATION
     Route: 048
  5. FESOTERODINE [Concomitant]
     Indication: PRODUCT USED FOR UNKNOWN INDICATION
     Dosage: 24 hour extended release
     Route: 048
     Dates: start: 20111230
  6. FLUOXETINE [Concomitant]
     Indication: PRODUCT USED FOR UNKNOWN INDICATION
     Route: 048
     Dates: start: 20120223
  7. FLUTICASONE [Concomitant]
     Indication: PRODUCT USED FOR UNKNOWN INDICATION
     Dosage: Spray two sprays in each nostril
     Dates: start: 20100602
  8. GABAPENTIN [Concomitant]
     Indication: PRODUCT USED FOR UNKNOWN INDICATION
     Dosage: at bedtime
     Dates: start: 20120523
  9. LUBRICATING JELLY GEL [Concomitant]
     Indication: PRODUCT USED FOR UNKNOWN INDICATION
     Route: 061
     Dates: start: 20100510
  10. OMEPRAZOLE [Concomitant]
     Indication: PRODUCT USED FOR UNKNOWN INDICATION
     Route: 048
     Dates: start: 20110826
  11. PEG 3350 [Concomitant]
     Indication: PRODUCT USED FOR UNKNOWN INDICATION
     Dosage: Drink eight ounces every 10 to 15 minutes until gone
     Dates: start: 20120817
  12. ROPINIROLE [Concomitant]
     Indication: PRODUCT USED FOR UNKNOWN INDICATION
     Dosage: Two or three tablets a day
     Dates: start: 20120223
  13. TIZANIDINE [Concomitant]
     Indication: PRODUCT USED FOR UNKNOWN INDICATION
     Dosage: every four to six hours as needed
     Dates: start: 20110221

REACTIONS (1)
  - Urinary incontinence [Not Recovered/Not Resolved]
